FAERS Safety Report 24076286 (Version 1)
Quarter: 2024Q3

REPORT INFORMATION
  Report Type: Spontaneous
  Country: US (occurrence: US)
  Receive Date: 20240711
  Receipt Date: 20240711
  Transmission Date: 20241017
  Serious: No
  Sender: STRIDES
  Company Number: US-STRIDES ARCOLAB LIMITED-2024SP004356

PATIENT
  Sex: Female

DRUGS (8)
  1. TORSEMIDE [Suspect]
     Active Substance: TORSEMIDE
     Indication: Product used for unknown indication
     Dosage: 40 MILLIGRAM, EVERY MORNING
     Route: 065
  2. TORSEMIDE [Suspect]
     Active Substance: TORSEMIDE
     Dosage: 30 MILLIGRAM AFTERNOON
     Route: 065
  3. LOSARTAN [Concomitant]
     Active Substance: LOSARTAN
     Indication: Product used for unknown indication
     Dosage: 50 MILLIGRAM, QD
     Route: 065
  4. CARVEDILOL [Concomitant]
     Active Substance: CARVEDILOL
     Indication: Product used for unknown indication
     Dosage: 12.5 MILLIGRAM, BID; (1.5 TABLET TWO TIMES DAILY)
     Route: 065
  5. KLOR-CON [Concomitant]
     Active Substance: POTASSIUM CHLORIDE
     Indication: Product used for unknown indication
     Dosage: 10 MEQ (TWO IN THE MORNINGS AND ONE IN THE AFTERNOON)
     Route: 065
  6. WARFARIN [Concomitant]
     Active Substance: WARFARIN
     Indication: Product used for unknown indication
     Dosage: 7.5 MILLIGRAM  EVERY DAY EXCEPT ENDWHEN 10 MG
     Route: 065
  7. SPIRONOLACTONE [Concomitant]
     Active Substance: SPIRONOLACTONE
     Indication: Product used for unknown indication
     Dosage: 25 MILLIGRAM, QD
     Route: 065
  8. MAGNESIUM [Concomitant]
     Active Substance: MAGNESIUM
     Indication: Product used for unknown indication
     Dosage: 500 MILLIGRAM, BID
     Route: 065

REACTIONS (1)
  - Muscle spasms [Unknown]
